FAERS Safety Report 13138934 (Version 3)
Quarter: 2017Q1

REPORT INFORMATION
  Report Type: Spontaneous
  Country: US (occurrence: US)
  Receive Date: 20170123
  Receipt Date: 20170209
  Transmission Date: 20170428
  Serious: No
  Sender: FDA-Public Use
  Company Number: US-PFIZER INC-2017026982

PATIENT
  Age: 57 Year
  Sex: Male

DRUGS (2)
  1. SUTENT [Suspect]
     Active Substance: SUNITINIB MALATE
     Indication: METASTATIC RENAL CELL CARCINOMA
     Dosage: 50 MG, DAILY
     Dates: end: 20170124
  2. SUTENT [Suspect]
     Active Substance: SUNITINIB MALATE
     Dosage: 50 MG, CYCLIC (QD X 4 WEEKS THEN 2 WEEKS OFF)
     Route: 048
     Dates: start: 20170105, end: 20170127

REACTIONS (11)
  - Thyroid disorder [Unknown]
  - Ageusia [Unknown]
  - Oral pain [Unknown]
  - Dysphagia [Unknown]
  - Heart rate irregular [Unknown]
  - Joint swelling [Unknown]
  - Glossodynia [Unknown]
  - Bone pain [Unknown]
  - Mucosal inflammation [Unknown]
  - Joint injury [Unknown]
  - Arthralgia [Unknown]
